FAERS Safety Report 7044477-4 (Version None)
Quarter: 2010Q4

REPORT INFORMATION
  Report Type: 
  Country: None (occurrence: None)
  Receive Date: 20101014
  Receipt Date: 20101001
  Transmission Date: 20110411
  Serious: Yes (Hospitalization)
  Sender: FDA-Public Use
  Company Number: US-US-EMD SERONO, INC.-7020030

PATIENT
  Sex: Female
  Weight: 91 kg

DRUGS (2)
  1. REBIF [Suspect]
     Indication: MULTIPLE SCLEROSIS
     Route: 058
     Dates: start: 20100611
  2. BIRTH CONTROL PILL [Concomitant]
     Indication: CONTRACEPTION
     Dates: start: 20100101

REACTIONS (2)
  - MULTIPLE SCLEROSIS RELAPSE [None]
  - THROMBOSIS [None]
